FAERS Safety Report 8480862-1 (Version None)
Quarter: 2012Q3

REPORT INFORMATION
  Report Type: 
  Country: None (occurrence: None)
  Receive Date: 20120702
  Receipt Date: 20120620
  Transmission Date: 20120928
  Serious: Yes (Hospitalization)
  Sender: FDA-Public Use
  Company Number: US-BAYER-2012-062591

PATIENT
  Age: 36 Year
  Sex: Female
  Weight: 61.224 kg

DRUGS (7)
  1. ALLEGRA [Concomitant]
  2. VICODIN [Concomitant]
  3. LEVOXYL [Concomitant]
  4. CORICIDIN [ACETYLSALICYLIC ACID,CHLORPHENAMINE MALEATE] [Concomitant]
  5. YAZ [Suspect]
  6. IBUPROFEN [Concomitant]
  7. RHINOCORT [Concomitant]

REACTIONS (2)
  - INTRACRANIAL VENOUS SINUS THROMBOSIS [None]
  - TRANSVERSE SINUS THROMBOSIS [None]
